FAERS Safety Report 9990751 (Version 2)
Quarter: 2014Q2

REPORT INFORMATION
  Report Type: Spontaneous
  Country: US (occurrence: US)
  Receive Date: 20140310
  Receipt Date: 20140502
  Transmission Date: 20141212
  Serious: No
  Sender: FDA-Public Use
  Company Number: US-PFIZER INC-2014062912

PATIENT
  Sex: Female

DRUGS (4)
  1. ADVIL ALLERGY AND CONGESTION RELIEF [Suspect]
     Indication: NASOPHARYNGITIS
     Dosage: UNK
  2. ADVIL ALLERGY AND CONGESTION RELIEF [Suspect]
     Indication: NASAL CONGESTION
  3. ADVIL ALLERGY AND CONGESTION RELIEF [Suspect]
     Indication: RHINORRHOEA
  4. ADVIL ALLERGY AND CONGESTION RELIEF [Suspect]
     Indication: HEADACHE

REACTIONS (1)
  - Drug ineffective [Unknown]
